FAERS Safety Report 4303366-6 (Version None)
Quarter: 2004Q1

REPORT INFORMATION
  Report Type: 
  Country: None (occurrence: None)
  Receive Date: 20040223
  Receipt Date: 20040211
  Transmission Date: 20041129
  Serious: No
  Sender: FDA-Public Use
  Company Number: 03P-056-0232565-00

PATIENT
  Age: 76 Year
  Sex: Female

DRUGS (11)
  1. BIAXIN [Suspect]
     Indication: EAR INFECTION
     Dosage: 250 MG, 2 IN 1 D, PER ORAL
     Route: 048
     Dates: start: 20020413
  2. BIAXIN [Suspect]
     Indication: PHARYNGITIS
     Dosage: 250 MG, 2 IN 1 D, PER ORAL
     Route: 048
     Dates: start: 20020413
  3. BIAXIN [Suspect]
     Indication: RHINITIS
     Dosage: 250 MG, 2 IN 1 D, PER ORAL
     Route: 048
     Dates: start: 20020413
  4. FENSPIRIDE [Concomitant]
  5. PREDNISOLONE [Concomitant]
  6. GINKGO TERE LEAVES EXTRACT [Concomitant]
  7. TRIMETAZIDINE [Concomitant]
  8. FENOFIBRATE [Concomitant]
  9. URAPIDIL [Concomitant]
  10. ASPIRIN [Concomitant]
  11. ACETYLLENCINE [Concomitant]

REACTIONS (8)
  - ANOREXIA [None]
  - ASTHENIA [None]
  - GASTROINTESTINAL DISORDER [None]
  - RENAL FAILURE ACUTE [None]
  - RESPIRATORY FAILURE [None]
  - VERTIGO [None]
  - VOMITING [None]
  - WEIGHT DECREASED [None]
